FAERS Safety Report 4530108-1 (Version None)
Quarter: 2004Q4

REPORT INFORMATION
  Report Type: 
  Country: None (occurrence: None)
  Receive Date: 20041214
  Receipt Date: 20041130
  Transmission Date: 20050328
  Serious: Yes (Hospitalization)
  Sender: FDA-Public Use
  Company Number: 210780

PATIENT
  Age: 43 Year
  Sex: Female

DRUGS (2)
  1. RITUXAN [Suspect]
     Indication: GRAFT VERSUS HOST DISEASE
     Dosage: 375  MG/M2, 1/WEEK, INTRAVENOUS
     Route: 042
     Dates: start: 20040720, end: 20040810
  2. VALACYCLOVIR HCL [Concomitant]

REACTIONS (3)
  - CYTOMEGALOVIRUS COLITIS [None]
  - GASTROINTESTINAL HAEMORRHAGE [None]
  - LARGE INTESTINAL ULCER [None]
